FAERS Safety Report 5205945-0 (Version None)
Quarter: 2007Q1

REPORT INFORMATION
  Report Type: 
  Country: None (occurrence: None)
  Receive Date: 20070111
  Receipt Date: 20070104
  Transmission Date: 20070707
  Serious: Yes (Hospitalization, Other)
  Sender: FDA-Public Use
  Company Number: CL-GLAXOSMITHKLINE-B0452096A

PATIENT
  Age: 37 Year
  Sex: Female

DRUGS (4)
  1. LAMIVUDINE [Suspect]
     Indication: HIV INFECTION
     Dosage: 150MG TWICE PER DAY
     Route: 065
     Dates: start: 20040401
  2. FLUCONAZOLE [Concomitant]
     Dosage: 200MG PER DAY
  3. STAVUDINE [Concomitant]
     Dosage: 30MG SEE DOSAGE TEXT
     Route: 065
     Dates: start: 20040401
  4. EFAVIRENZ [Concomitant]
     Dosage: 600MG AT NIGHT
     Route: 065
     Dates: start: 20040401

REACTIONS (14)
  - CONFUSIONAL STATE [None]
  - CRYPTOCOCCOSIS [None]
  - GENERAL PHYSICAL HEALTH DETERIORATION [None]
  - HEAD DISCOMFORT [None]
  - HEADACHE [None]
  - IMMUNE RECONSTITUTION SYNDROME [None]
  - INFLAMMATION [None]
  - INTRACRANIAL PRESSURE INCREASED [None]
  - MENINGITIS ASEPTIC [None]
  - MENINGITIS BACTERIAL [None]
  - MENINGITIS CRYPTOCOCCAL [None]
  - NAUSEA [None]
  - PYREXIA [None]
  - VASCULITIS [None]
